FAERS Safety Report 20546904 (Version 1)
Quarter: 2022Q1

REPORT INFORMATION
  Report Type: Other
  Country: LK (occurrence: None)
  Receive Date: 20220303
  Receipt Date: 20220303
  Transmission Date: 20220424
  Serious: Yes (Death)
  Sender: FDA-Public Use
  Company Number: LK-ROCHE-3035936

PATIENT

DRUGS (1)
  1. RITUXIMAB [Suspect]
     Active Substance: RITUXIMAB
     Indication: Lupus nephritis
     Route: 065

REACTIONS (1)
  - Sepsis [Fatal]
